FAERS Safety Report 13941121 (Version 3)
Quarter: 2018Q1

REPORT INFORMATION
  Report Type: Spontaneous
  Country: DE (occurrence: DE)
  Receive Date: 20170906
  Receipt Date: 20180302
  Transmission Date: 20180508
  Serious: Yes (Hospitalization, Other)
  Sender: FDA-Public Use
  Company Number: DE-SA-2017SA157785

PATIENT
  Age: 45 Year
  Sex: Female
  Weight: 60 kg

DRUGS (11)
  1. LEMTRADA [Suspect]
     Active Substance: ALEMTUZUMAB
     Indication: RELAPSING-REMITTING MULTIPLE SCLEROSIS
     Route: 041
     Dates: start: 201401, end: 201401
  2. ACICLOVIR [Concomitant]
     Active Substance: ACYCLOVIR
     Route: 065
  3. ZINBRYTA [Suspect]
     Active Substance: DACLIZUMAB
     Indication: RELAPSING-REMITTING MULTIPLE SCLEROSIS
     Route: 058
     Dates: start: 20161001, end: 20170401
  4. FAMPYRA [Concomitant]
     Active Substance: DALFAMPRIDINE
     Route: 065
  5. SALOFALK [Concomitant]
     Active Substance: MESALAMINE
     Route: 065
  6. LEMTRADA [Suspect]
     Active Substance: ALEMTUZUMAB
     Indication: RELAPSING-REMITTING MULTIPLE SCLEROSIS
     Route: 041
     Dates: start: 201501, end: 201501
  7. ASPIRIN. [Concomitant]
     Active Substance: ASPIRIN
     Route: 065
  8. LEMTRADA [Suspect]
     Active Substance: ALEMTUZUMAB
     Indication: RELAPSING-REMITTING MULTIPLE SCLEROSIS
     Route: 041
     Dates: start: 201601, end: 201601
  9. ELONTRIL [Concomitant]
     Active Substance: BUPROPION HYDROCHLORIDE
     Route: 065
  10. PANTOZOL [Concomitant]
     Active Substance: PANTOPRAZOLE SODIUM
     Route: 065
  11. NOVAMINSULFON [Concomitant]
     Active Substance: METAMIZOLE
     Route: 065

REACTIONS (2)
  - Agranulocytosis [Not Recovered/Not Resolved]
  - Neutropenia [Recovering/Resolving]

NARRATIVE: CASE EVENT DATE: 20170604
